FAERS Safety Report 15315920 (Version 2)
Quarter: 2018Q3

REPORT INFORMATION
  Report Type: Spontaneous
  Country: US (occurrence: US)
  Receive Date: 20180824
  Receipt Date: 20180903
  Transmission Date: 20181010
  Serious: Yes (Hospitalization, Other)
  Sender: FDA-Public Use
  Company Number: US-SHIRE-US201832517

PATIENT
  Sex: Female

DRUGS (1)
  1. CUVITRU [Suspect]
     Active Substance: HUMAN IMMUNOGLOBULIN G
     Indication: PRODUCT USED FOR UNKNOWN INDICATION
     Dosage: 8 G, VIALS
     Route: 065
     Dates: start: 201804

REACTIONS (9)
  - Gait disturbance [Unknown]
  - Malaise [Unknown]
  - Nausea [Unknown]
  - Somnolence [Unknown]
  - Hospitalisation [Unknown]
  - Headache [Unknown]
  - Feeling abnormal [Unknown]
  - Dizziness [Unknown]
  - Balance disorder [Unknown]
